FAERS Safety Report 25257412 (Version 1)
Quarter: 2025Q2

REPORT INFORMATION
  Report Type: Spontaneous
  Country: CH (occurrence: CH)
  Receive Date: 20250430
  Receipt Date: 20250430
  Transmission Date: 20250717
  Serious: Yes (Hospitalization, Other)
  Sender: MERCK SHARP & DOHME LLC
  Company Number: None

PATIENT
  Age: 25 Year
  Sex: Male
  Weight: 85.3 kg

DRUGS (16)
  1. APREPITANT [Suspect]
     Active Substance: APREPITANT
     Route: 048
     Dates: start: 20250225, end: 20250302
  2. ALLOPURINOL [Suspect]
     Active Substance: ALLOPURINOL
     Dosage: 300 MG, EVERY 24 HOURS
     Route: 048
     Dates: start: 20250223, end: 20250304
  3. DEXAMETHASONE [Concomitant]
     Active Substance: DEXAMETHASONE
     Dosage: 8 MG, EVERY 24 HOURS
     Route: 048
     Dates: start: 20250225, end: 20250301
  4. ETOPOSIDE [Suspect]
     Active Substance: ETOPOSIDE
     Indication: Testicular germ cell cancer
     Dosage: 220 MG, EVERY 24 HOURS
     Dates: start: 20250225, end: 20250301
  5. IFOSFAMIDE [Suspect]
     Active Substance: IFOSFAMIDE
     Indication: Testicular germ cell cancer
     Dosage: 2800 MG, EVERY 24 HOURS
     Dates: start: 20250225, end: 20250301
  6. ENOXAPARIN SODIUM [Concomitant]
     Active Substance: ENOXAPARIN SODIUM
     Dosage: 100 MG, EVERY 12 HOURS
     Route: 058
     Dates: start: 20250223, end: 20250304
  7. DUPHALAC [Concomitant]
     Active Substance: LACTULOSE
     Route: 048
  8. Paspertin [Concomitant]
     Route: 048
  9. FUROSEMIDE [Suspect]
     Active Substance: FUROSEMIDE
     Route: 042
     Dates: start: 20250226, end: 20250302
  10. METAMIZOLE [Suspect]
     Active Substance: METAMIZOLE
     Route: 048
  11. ONDANSETRON [Concomitant]
     Active Substance: ONDANSETRON
     Dosage: 8 MG, EVERY 12 HOURS
     Route: 048
     Dates: start: 20250225, end: 20250304
  12. DAFALGAN [Concomitant]
     Active Substance: ACETAMINOPHEN
     Dosage: 500 MG, EVERY 24 HOURS
     Route: 048
     Dates: start: 20250307, end: 20250312
  13. DAFALGAN [Concomitant]
     Active Substance: ACETAMINOPHEN
     Dosage: 500 MG, EVERY 24 HOURS
     Route: 048
     Dates: start: 20250225, end: 20250226
  14. METHYLPREDNISOLONE [Concomitant]
     Active Substance: METHYLPREDNISOLONE
     Dosage: 250 MG, EVERY 24 HOURS
     Dates: start: 20250223, end: 20250226
  15. OLANZAPINE [Suspect]
     Active Substance: OLANZAPINE
     Dosage: 5 MG, EVERY 24 HOURS
     Route: 048
     Dates: start: 20250225, end: 20250303
  16. CISPLATIN [Suspect]
     Active Substance: CISPLATIN
     Indication: Testicular germ cell cancer
     Dosage: 45 MG, EVERY 24 HOURS
     Dates: start: 20250225, end: 20250301

REACTIONS (1)
  - Pancytopenia [Recovering/Resolving]

NARRATIVE: CASE EVENT DATE: 20250301
